FAERS Safety Report 5711112-4 (Version None)
Quarter: 2008Q2

REPORT INFORMATION
  Report Type: 
  Country: None (occurrence: None)
  Receive Date: 20080417
  Receipt Date: 20080417
  Transmission Date: 20081010
  Serious: Yes (Hospitalization)
  Sender: FDA-Public Use
  Company Number: None

PATIENT
  Age: 19 Year
  Sex: Female
  Weight: 79.38 kg

DRUGS (1)
  1. PROHANCE -GADOTERIDOL-  279.3 MG/ML  BRACCO [Suspect]
     Indication: NUCLEAR MAGNETIC RESONANCE IMAGING
     Dosage: 15ML -4.189GM-  ONCE OVER 1 MINUTE  IV
     Route: 042
     Dates: start: 20080312, end: 20080312

REACTIONS (7)
  - DIZZINESS [None]
  - FLUSHING [None]
  - HEADACHE [None]
  - PRURITUS [None]
  - RASH [None]
  - TREMOR [None]
  - URTICARIA [None]
